FAERS Safety Report 15886562 (Version 4)
Quarter: 2020Q1

REPORT INFORMATION
  Report Type: Spontaneous
  Country: US (occurrence: US)
  Receive Date: 20190129
  Receipt Date: 20200319
  Transmission Date: 20200409
  Serious: No
  Sender: FDA-Public Use
  Company Number: US-ACTELION-A-NJ2019-184881

PATIENT
  Age: 57 Year
  Sex: Male
  Weight: 124.72 kg

DRUGS (3)
  1. ELIQUIS [Concomitant]
     Active Substance: APIXABAN
  2. ADEMPAS [Concomitant]
     Active Substance: RIOCIGUAT
  3. OPSUMIT [Suspect]
     Active Substance: MACITENTAN
     Indication: PULMONARY ARTERIAL HYPERTENSION
     Dosage: 10 MG, QD
     Route: 048

REACTIONS (8)
  - Dyspnoea [Unknown]
  - Swelling [Recovering/Resolving]
  - Rash pruritic [Unknown]
  - Nasopharyngitis [Unknown]
  - Tooth abscess [Unknown]
  - Product dose omission [Unknown]
  - Toothache [Unknown]
  - Tooth infection [Unknown]

NARRATIVE: CASE EVENT DATE: 201908
